FAERS Safety Report 10033315 (Version 1)
Quarter: 2014Q1

REPORT INFORMATION
  Report Type: Spontaneous
  Country: US (occurrence: US)
  Receive Date: 20140325
  Receipt Date: 20140325
  Transmission Date: 20141002
  Serious: Yes (Other)
  Sender: FDA-Public Use
  Company Number: US-ROCHE-1368817

PATIENT
  Age: 34 Year
  Sex: Male

DRUGS (5)
  1. RIBAVIRIN [Suspect]
     Indication: PRODUCT USED FOR UNKNOWN INDICATION
     Route: 065
  2. RIBAVIRIN [Suspect]
     Route: 065
  3. SOVALDI [Suspect]
     Indication: PRODUCT USED FOR UNKNOWN INDICATION
     Route: 065
  4. ZOLOFT [Concomitant]
  5. XANAX [Concomitant]

REACTIONS (2)
  - Angioedema [Recovered/Resolved]
  - Swelling face [Recovered/Resolved]
